FAERS Safety Report 24744033 (Version 1)
Quarter: 2024Q4

REPORT INFORMATION
  Report Type: Spontaneous
  Country: US (occurrence: None)
  Receive Date: 20241216
  Receipt Date: 20241216
  Transmission Date: 20250114
  Serious: Yes (Hospitalization)
  Sender: Public
  Company Number: None

PATIENT
  Age: 61 Year
  Sex: Female
  Weight: 159.7 kg

DRUGS (5)
  1. POLATUZUMAB VEDOTIN-PIIQ [Suspect]
     Active Substance: POLATUZUMAB VEDOTIN-PIIQ
     Indication: Diffuse large B-cell lymphoma stage II
     Dosage: OTHER FREQUENCY : ONCE;?
     Route: 042
     Dates: start: 20241114
  2. RITUXIMAB [Suspect]
     Active Substance: RITUXIMAB
  3. CYCLOPHOSPHAMIDE [Suspect]
     Active Substance: CYCLOPHOSPHAMIDE
  4. DOXORUBICIN [Suspect]
     Active Substance: DOXORUBICIN
  5. PREDNISONE [Suspect]
     Active Substance: PREDNISONE

REACTIONS (2)
  - Diarrhoea [None]
  - Blood pressure abnormal [None]

NARRATIVE: CASE EVENT DATE: 20241123
